FAERS Safety Report 7901809-X (Version None)
Quarter: 2011Q4

REPORT INFORMATION
  Report Type: 
  Country: None (occurrence: None)
  Receive Date: 20111108
  Receipt Date: 20111031
  Transmission Date: 20120403
  Serious: Yes (Death, Hospitalization)
  Sender: FDA-Public Use
  Company Number: PHHY2011US96675

PATIENT
  Age: 69 Year
  Sex: Female

DRUGS (3)
  1. CYCLOSPORINE [Suspect]
     Indication: HEART TRANSPLANT
     Dosage: 10 MG, BID
  2. PREDNISONE [Suspect]
     Dosage: 5 MG, DAILY
  3. MYCOPHENOLATE MOFETIL [Suspect]
     Dosage: 500 MG, BID

REACTIONS (11)
  - INFECTION PARASITIC [None]
  - MULTI-ORGAN FAILURE [None]
  - CYTOMEGALOVIRUS INFECTION [None]
  - GASTROINTESTINAL HAEMORRHAGE [None]
  - FEMUR FRACTURE [None]
  - POST PROCEDURAL HAEMORRHAGE [None]
  - CANDIDIASIS [None]
  - FUNGAEMIA [None]
  - DEVICE RELATED INFECTION [None]
  - VIRAEMIA [None]
  - GENERAL PHYSICAL HEALTH DETERIORATION [None]
